FAERS Safety Report 14247757 (Version 2)
Quarter: 2018Q1

REPORT INFORMATION
  Report Type: Report from Study
  Country: JP (occurrence: JP)
  Receive Date: 20171204
  Receipt Date: 20180102
  Transmission Date: 20180508
  Serious: Yes (Hospitalization)
  Sender: FDA-Public Use
  Company Number: JP-ACTELION-A-CH2017-163187

PATIENT
  Age: 78 Year
  Sex: Female

DRUGS (12)
  1. CEFCAPENE PIVOXIL HYDROCHLORIDE [Concomitant]
     Active Substance: CEFCAPENE PIVOXIL HYDROCHLORIDE
  2. VITAMINS NOS [Concomitant]
     Active Substance: VITAMINS
  3. SELARA [Concomitant]
     Active Substance: EPLERENONE
  4. PLETAAL [Concomitant]
     Active Substance: CILOSTAZOL
  5. REVATIO [Concomitant]
     Active Substance: SILDENAFIL CITRATE
  6. DOGMATYL [Concomitant]
     Active Substance: SULPIRIDE
  7. TAKEPRON [Concomitant]
     Active Substance: LANSOPRAZOLE
  8. FOSAMAC [Concomitant]
     Active Substance: ALENDRONATE SODIUM
  9. PREDONINE [Concomitant]
     Active Substance: PREDNISOLONE
  10. JUVELA N [Concomitant]
     Active Substance: TOCOPHERYL NICOTINATE, D-.ALPHA.
  11. OPSUMIT [Suspect]
     Active Substance: MACITENTAN
     Indication: PULMONARY ARTERIAL HYPERTENSION
     Dosage: 10 MG, OD
     Route: 048
     Dates: start: 20160818
  12. ARTIST [Concomitant]
     Active Substance: CARVEDILOL

REACTIONS (8)
  - Abdominal distension [Not Recovered/Not Resolved]
  - Oedema [Not Recovered/Not Resolved]
  - Ascites [Not Recovered/Not Resolved]
  - Diarrhoea [Recovered/Resolved]
  - Nasopharyngitis [Recovered/Resolved]
  - Dermal cyst [Recovered/Resolved]
  - Abdominal cavity drainage [Unknown]
  - Faeces soft [Recovered/Resolved]

NARRATIVE: CASE EVENT DATE: 20170126
